FAERS Safety Report 14138992 (Version 2)
Quarter: 2018Q1

REPORT INFORMATION
  Report Type: Spontaneous
  Country: US (occurrence: US)
  Receive Date: 20171027
  Receipt Date: 20180125
  Transmission Date: 20180508
  Serious: No
  Sender: FDA-Public Use
  Company Number: US-AMGEN-USASP2017155436

PATIENT
  Sex: Female

DRUGS (3)
  1. AFLURIA [Concomitant]
     Active Substance: INFLUENZA VIRUS VACCINE TRIVALENT TYPE A+B AFLURIA
  2. VITAMIN D [Concomitant]
     Active Substance: CHOLECALCIFEROL
  3. REPATHA [Suspect]
     Active Substance: EVOLOCUMAB
     Indication: ARTERIOSCLEROSIS
     Dosage: 140 MG, Q2WK
     Route: 058

REACTIONS (2)
  - Cough [Recovered/Resolved]
  - Weight increased [Recovered/Resolved]
